FAERS Safety Report 6461846-1 (Version None)
Quarter: 2009Q4

REPORT INFORMATION
  Report Type: 
  Country: None (occurrence: None)
  Receive Date: 20091130
  Receipt Date: 20091120
  Transmission Date: 20100525
  Serious: Yes (Other)
  Sender: FDA-Public Use
  Company Number: ES-MERCK-0911ESP00036

PATIENT
  Age: 49 Year
  Sex: Female

DRUGS (3)
  1. SINGULAIR [Suspect]
     Indication: CHRONIC OBSTRUCTIVE PULMONARY DISEASE
     Route: 048
     Dates: start: 20090902, end: 20090916
  2. SINGULAIR [Suspect]
     Route: 048
     Dates: start: 20090101
  3. FLUTICASONE PROPIONATE AND SALMETEROL XINAFOATE [Concomitant]
     Indication: CHRONIC OBSTRUCTIVE PULMONARY DISEASE

REACTIONS (3)
  - CONFUSIONAL STATE [None]
  - DEPERSONALISATION [None]
  - NIGHTMARE [None]
